FAERS Safety Report 13517615 (Version 5)
Quarter: 2017Q3

REPORT INFORMATION
  Report Type: Spontaneous
  Country: US (occurrence: US)
  Receive Date: 20170505
  Receipt Date: 20170810
  Transmission Date: 20171127
  Serious: Yes (Hospitalization)
  Sender: FDA-Public Use
  Company Number: US-PFIZER INC-2017191603

PATIENT
  Age: 70 Year
  Sex: Female
  Weight: 65 kg

DRUGS (7)
  1. IBRANCE [Suspect]
     Active Substance: PALBOCICLIB
     Indication: BREAST CANCER STAGE IV
     Dosage: 75 MG, CYCLIC (2 WEEKS ON AND 1 WEEK OFF, EVERY OTHER DAY)
     Dates: start: 201702, end: 201703
  2. CALCIUM [Concomitant]
     Active Substance: CALCIUM
     Dosage: UNK
     Dates: start: 2014
  3. IBRANCE [Suspect]
     Active Substance: PALBOCICLIB
     Dosage: 75 MG, CYCLIC (2 WEEKS ON AND 1 WEEK OFF, EVERY OTHER DAY)
  4. FENTANYL. [Concomitant]
     Active Substance: FENTANYL
     Indication: PAIN
     Dosage: 50 MG, UNK
     Dates: start: 2015
  5. LISINOPRIL. [Concomitant]
     Active Substance: LISINOPRIL
     Indication: BLOOD PRESSURE ABNORMAL
     Dosage: 10 MG, UNK
     Dates: start: 2015
  6. FASLODEX [Concomitant]
     Active Substance: FULVESTRANT
     Indication: NEOPLASM MALIGNANT
     Dosage: UNK
     Dates: start: 2015
  7. ZOLEDRONIC ACID [Concomitant]
     Active Substance: ZOLEDRONIC ACID
     Indication: BONE CANCER
     Dosage: UNK

REACTIONS (14)
  - Decreased appetite [Recovered/Resolved]
  - Syncope [Recovered/Resolved]
  - Thrombosis [Not Recovered/Not Resolved]
  - Fungaemia [Recovered/Resolved]
  - Condition aggravated [Recovered/Resolved]
  - Pulmonary thrombosis [Not Recovered/Not Resolved]
  - Malaise [Unknown]
  - Tremor [Recovered/Resolved]
  - Diarrhoea [Recovered/Resolved]
  - Hip fracture [Recovered/Resolved]
  - Asthenia [Recovered/Resolved]
  - Fatigue [Recovered/Resolved]
  - Alopecia [Unknown]
  - Urinary tract infection [Recovered/Resolved]

NARRATIVE: CASE EVENT DATE: 20170304
